FAERS Safety Report 15110785 (Version 1)
Quarter: 2018Q2

REPORT INFORMATION
  Report Type: Spontaneous
  Country: US (occurrence: US)
  Receive Date: 20180612
  Receipt Date: 20180612
  Transmission Date: 20180711
  Serious: No
  Sender: FDA-Public Use
  Company Number: None

PATIENT
  Age: 64 Year
  Sex: Female

DRUGS (1)
  1. HUMIRA [Suspect]
     Active Substance: ADALIMUMAB
     Indication: RHEUMATOID ARTHRITIS
     Route: 058
     Dates: start: 20140711, end: 20180611

REACTIONS (4)
  - Lethargy [None]
  - Arthritis [None]
  - Spinal pain [None]
  - Mental impairment [None]

NARRATIVE: CASE EVENT DATE: 20180603
